FAERS Safety Report 24059923 (Version 3)
Quarter: 2024Q4

REPORT INFORMATION
  Report Type: Spontaneous
  Country: US (occurrence: US)
  Receive Date: 20240708
  Receipt Date: 20241004
  Transmission Date: 20250115
  Serious: No
  Sender: PFIZER
  Company Number: US-PFIZER INC-202400206223

PATIENT
  Age: 13 Year
  Sex: Male
  Weight: 72.57 kg

DRUGS (1)
  1. GENOTROPIN [Suspect]
     Active Substance: SOMATROPIN
     Indication: Blood growth hormone abnormal
     Dosage: 3.2, 1X/DAY

REACTIONS (3)
  - Device breakage [Unknown]
  - Device information output issue [Unknown]
  - Drug dose omission by device [Unknown]
